FAERS Safety Report 7867062-0 (Version None)
Quarter: 2011Q4

REPORT INFORMATION
  Report Type: 
  Country: None (occurrence: None)
  Receive Date: 20111028
  Receipt Date: 20111026
  Transmission Date: 20120403
  Serious: Yes (Death)
  Sender: FDA-Public Use
  Company Number: US-PFIZER INC-2011192735

PATIENT
  Sex: Female
  Weight: 87.7 kg

DRUGS (12)
  1. OMEPRAZOLE [Concomitant]
     Dosage: 20 MG, 1X/DAY
     Route: 048
  2. LIPITOR [Concomitant]
     Indication: HYPERCHOLESTEROLAEMIA
     Dosage: 10 MG, 1X/DAY
     Route: 048
  3. FOLIC ACID [Concomitant]
     Dosage: 1 MG, 1X/DAY
     Route: 048
  4. LEVOTHYROXINE [Concomitant]
     Dosage: 100 MG, 1X/DAY
     Route: 048
  5. COLACE [Concomitant]
     Dosage: 100 MG, 1X/DAY
     Route: 048
  6. VICOPROFEN [Concomitant]
     Dosage: 75-200 MG EVERY 4HRS, AS NEEDED
     Route: 048
  7. PROCHLORPERAZINE [Concomitant]
     Dosage: 10 MG, 1X/DAY
     Route: 048
  8. ONDANSETRON [Concomitant]
     Dosage: 4 MG, AS NEEDED
     Route: 048
  9. CRIZOTINIB [Suspect]
     Indication: NON-SMALL CELL LUNG CANCER
     Dosage: 250 MG, 2X/DAY
     Route: 048
     Dates: start: 20110727, end: 20110816
  10. DEXAMETHASONE [Suspect]
     Indication: PALLIATIVE CARE
     Dosage: 4 MG, 2X/DAY
     Route: 048
     Dates: start: 20110705
  11. CALCIUM [Concomitant]
     Dosage: 500 MG, 2X/DAY
     Route: 048
  12. OXYCONTIN [Concomitant]
     Indication: BACK PAIN
     Dosage: 20 MG, 2X/DAY
     Route: 048
     Dates: start: 20110721

REACTIONS (1)
  - PNEUMONIA [None]
